FAERS Safety Report 9687230 (Version 1)
Quarter: 2013Q4

REPORT INFORMATION
  Report Type: Spontaneous
  Country: AU (occurrence: AU)
  Receive Date: 20131113
  Receipt Date: 20131113
  Transmission Date: 20140711
  Serious: Yes (Hospitalization)
  Sender: FDA-Public Use
  Company Number: AU-ROCHE-1303047

PATIENT
  Age: 46 Year
  Sex: Female

DRUGS (2)
  1. RITUXIMAB [Suspect]
     Indication: SJOGREN^S SYNDROME
     Route: 065
  2. RITUXIMAB [Suspect]
     Indication: INTERSTITIAL LUNG DISEASE

REACTIONS (2)
  - Thrombocytopenia [Unknown]
  - Infusion related reaction [Unknown]
